FAERS Safety Report 24162313 (Version 1)
Quarter: 2024Q3

REPORT INFORMATION
  Report Type: Spontaneous
  Country: CA (occurrence: CA)
  Receive Date: 20240801
  Receipt Date: 20240801
  Transmission Date: 20241016
  Serious: Yes (Other)
  Sender: PFIZER
  Company Number: CA-PFIZER INC-202400226762

PATIENT
  Age: 51 Year
  Sex: Female

DRUGS (13)
  1. HYDROCORTISONE [Suspect]
     Active Substance: HYDROCORTISONE\HYDROCORTISONE ACETATE
  2. PEGFILGRASTIM [Suspect]
     Active Substance: PEGFILGRASTIM
  3. ACETAMINOPHEN [Suspect]
     Active Substance: ACETAMINOPHEN
  4. BIOTIN [Suspect]
     Active Substance: BIOTIN
  5. CALCIUM CARBONATE [Suspect]
     Active Substance: CALCIUM CARBONATE
  6. CHOLECALCIFEROL [Suspect]
     Active Substance: CHOLECALCIFEROL
  7. DEXAMETHASONE [Suspect]
     Active Substance: DEXAMETHASONE
  8. IBUPROFEN [Suspect]
     Active Substance: IBUPROFEN
  9. MAGNESIUM [Suspect]
     Active Substance: MAGNESIUM
  10. OLANZAPINE [Suspect]
     Active Substance: OLANZAPINE
  11. CETIRIZINE HYDROCHLORIDE [Suspect]
     Active Substance: CETIRIZINE HYDROCHLORIDE
  12. VALACYCLOVIR [Suspect]
     Active Substance: VALACYCLOVIR HYDROCHLORIDE
  13. POVIDONE-IODINE [Suspect]
     Active Substance: POVIDONE-IODINE

REACTIONS (1)
  - Febrile neutropenia [Unknown]
